FAERS Safety Report 13464547 (Version 1)
Quarter: 2017Q2

REPORT INFORMATION
  Report Type: Spontaneous
  Country: US (occurrence: US)
  Receive Date: 20170420
  Receipt Date: 20170420
  Transmission Date: 20170830
  Serious: Yes (Other)
  Sender: FDA-Public Use
  Company Number: US-ROCHE-721641

PATIENT
  Age: 18 Year
  Sex: Male
  Weight: 90.7 kg

DRUGS (2)
  1. TYLENOL [Concomitant]
     Active Substance: ACETAMINOPHEN
     Route: 065
  2. ACCUTANE [Suspect]
     Active Substance: ISOTRETINOIN
     Indication: ACNE
     Route: 048
     Dates: start: 20020702, end: 20021206

REACTIONS (6)
  - Colitis ulcerative [Unknown]
  - Alanine aminotransferase increased [Unknown]
  - Inflammatory bowel disease [Unknown]
  - Dry skin [Unknown]
  - Aspartate aminotransferase increased [Unknown]
  - Lip dry [Unknown]

NARRATIVE: CASE EVENT DATE: 20020726
